FAERS Safety Report 5777133-0 (Version None)
Quarter: 2008Q2

REPORT INFORMATION
  Report Type: 
  Country: None (occurrence: None)
  Receive Date: 20080617
  Receipt Date: 20080617
  Transmission Date: 20081010
  Serious: No
  Sender: FDA-Public Use
  Company Number: None

PATIENT
  Age: 37 Year
  Sex: Female
  Weight: 54.4316 kg

DRUGS (1)
  1. BUDEPRION         300 MG         TEVA [Suspect]
     Indication: DEPRESSION
     Dosage: 300 MG ONCE DAILY PO
     Route: 048
     Dates: start: 20080526

REACTIONS (4)
  - CONSTIPATION [None]
  - HEADACHE [None]
  - MOOD ALTERED [None]
  - PHARMACEUTICAL PRODUCT COMPLAINT [None]
